FAERS Safety Report 6929193-9 (Version None)
Quarter: 2010Q3

REPORT INFORMATION
  Report Type: 
  Country: None (occurrence: None)
  Receive Date: 20100817
  Receipt Date: 20100809
  Transmission Date: 20110219
  Serious: Yes (Hospitalization)
  Sender: FDA-Public Use
  Company Number: BR-AMGEN-QUU430848

PATIENT
  Sex: Female

DRUGS (2)
  1. GRANULOKINE [Suspect]
     Indication: NEUTROPENIA
     Route: 042
     Dates: start: 20100701, end: 20100801
  2. TAXOTERE [Concomitant]

REACTIONS (9)
  - BLOOD PRESSURE INCREASED [None]
  - BODY TEMPERATURE INCREASED [None]
  - DRUG INEFFECTIVE [None]
  - DYSPNOEA [None]
  - NAUSEA [None]
  - PLATELET DISORDER [None]
  - SUFFOCATION FEELING [None]
  - TREMOR [None]
  - VOMITING [None]
